FAERS Safety Report 10625051 (Version 1)
Quarter: 2014Q4

REPORT INFORMATION
  Report Type: Spontaneous
  Country: US (occurrence: US)
  Receive Date: 20141204
  Receipt Date: 20141204
  Transmission Date: 20150529
  Serious: No
  Sender: FDA-Public Use
  Company Number: US-BIOGENIDEC-2014BI126556

PATIENT
  Age: 35 Year
  Sex: Female

DRUGS (8)
  1. TECFIDERA [Suspect]
     Active Substance: DIMETHYL FUMARATE
     Indication: MULTIPLE SCLEROSIS
     Route: 048
  2. ADDERALL [Concomitant]
     Active Substance: AMPHETAMINE ASPARTATE\AMPHETAMINE SULFATE\DEXTROAMPHETAMINE SACCHARATE\DEXTROAMPHETAMINE SULFATE
  3. TEGRETOL [Concomitant]
     Active Substance: CARBAMAZEPINE
  4. BACLOFEN. [Concomitant]
     Active Substance: BACLOFEN
  5. CLIMARA [Concomitant]
     Active Substance: ESTRADIOL
  6. NORCO [Concomitant]
     Active Substance: ACETAMINOPHEN\HYDROCODONE BITARTRATE
  7. PROMETHAZINE HCL [Concomitant]
     Active Substance: PROMETHAZINE HYDROCHLORIDE
  8. AMBIEN [Concomitant]
     Active Substance: ZOLPIDEM TARTRATE

REACTIONS (1)
  - Drug ineffective [Unknown]
